FAERS Safety Report 9682518 (Version 1)
Quarter: 2013Q4

REPORT INFORMATION
  Report Type: Report from Study
  Country: US (occurrence: US)
  Receive Date: 20131112
  Receipt Date: 20131112
  Transmission Date: 20140711
  Serious: Yes (Hospitalization)
  Sender: FDA-Public Use
  Company Number: US-BRISTOL-MYERS SQUIBB COMPANY-19729524

PATIENT
  Age: 61 Year
  Sex: Female
  Weight: 88 kg

DRUGS (1)
  1. IPILIMUMAB [Suspect]
     Indication: MALIGNANT MELANOMA
     Dosage: LAST DOSE: 22-AUG-2013
     Dates: start: 20130617

REACTIONS (2)
  - Abdominal pain [Recovering/Resolving]
  - Diarrhoea [Recovering/Resolving]
